FAERS Safety Report 9997354 (Version 1)
Quarter: 2014Q1

REPORT INFORMATION
  Report Type: Spontaneous
  Country: US (occurrence: None)
  Receive Date: 20140218
  Receipt Date: 20140218
  Transmission Date: 20141002
  Serious: Yes (Other)
  Sender: FDA-Public Use
  Company Number: 1000051918

PATIENT
  Sex: Male

DRUGS (1)
  1. VIIBRYD [Suspect]
     Dosage: 40MG (40 MG, 1IN 1 D), ORAL
     Route: 048

REACTIONS (3)
  - Irritability [None]
  - Feeling abnormal [None]
  - Anger [None]
